FAERS Safety Report 22225336 (Version 3)
Quarter: 2023Q2

REPORT INFORMATION
  Report Type: Spontaneous
  Country: US (occurrence: US)
  Receive Date: 20230418
  Receipt Date: 20230613
  Transmission Date: 20230721
  Serious: No
  Sender: FDA-Public Use
  Company Number: US-BRISTOL-MYERS SQUIBB COMPANY-2023-051609

PATIENT
  Age: 69 Year
  Sex: Female

DRUGS (1)
  1. REVLIMID [Suspect]
     Active Substance: LENALIDOMIDE
     Indication: Stem cell transplant
     Dosage: FREQUENCY-TAKE 1 CAPSULE BY MOUTH DAILY?PRODUCT START-21-04-2022
     Route: 048

REACTIONS (2)
  - Product storage error [Unknown]
  - Constipation [Not Recovered/Not Resolved]
